FAERS Safety Report 5160066-0 (Version None)
Quarter: 2006Q4

REPORT INFORMATION
  Report Type: 
  Country: None (occurrence: None)
  Receive Date: 20061129
  Receipt Date: 20060906
  Transmission Date: 20070319
  Serious: No
  Sender: FDA-Public Use
  Company Number: US-GLAXOSMITHKLINE-A0619249A

PATIENT
  Age: 46 Year
  Sex: Male

DRUGS (6)
  1. WELLBUTRIN SR [Suspect]
     Indication: DEPRESSION
     Dosage: 150MG TWICE PER DAY
     Route: 048
     Dates: start: 20051201, end: 20051203
  2. REYATAZ [Concomitant]
  3. NORVIR [Concomitant]
  4. TRUVADA [Concomitant]
  5. DOXEPIN HCL [Concomitant]
  6. TRAZODONE HCL [Concomitant]

REACTIONS (5)
  - ANXIETY [None]
  - CONFUSIONAL STATE [None]
  - FEELING JITTERY [None]
  - INSOMNIA [None]
  - PANIC REACTION [None]
